FAERS Safety Report 6603050-X (Version None)
Quarter: 2010Q1

REPORT INFORMATION
  Report Type: 
  Country: None (occurrence: None)
  Receive Date: 20100226
  Receipt Date: 20100216
  Transmission Date: 20100710
  Serious: Yes (Hospitalization)
  Sender: FDA-Public Use
  Company Number: PHEH2009US18900

PATIENT
  Sex: Female

DRUGS (2)
  1. EXJADE [Suspect]
     Indication: IRON OVERLOAD
     Dosage: 500 MG, BID
     Route: 048
     Dates: start: 20090430, end: 20090521
  2. EXJADE [Suspect]
     Indication: THALASSAEMIA

REACTIONS (3)
  - BLOOD CREATININE INCREASED [None]
  - OEDEMA PERIPHERAL [None]
  - RENAL DISORDER [None]
